FAERS Safety Report 15119707 (Version 2)
Quarter: 2018Q3

REPORT INFORMATION
  Report Type: Report from Study
  Country: US (occurrence: US)
  Receive Date: 20180709
  Receipt Date: 20180720
  Transmission Date: 20181010
  Serious: No
  Sender: FDA-Public Use
  Company Number: PHEH2018US028113

PATIENT
  Sex: Male

DRUGS (2)
  1. GLEEVEC [Suspect]
     Active Substance: IMATINIB MESYLATE
     Indication: PRODUCT USED FOR UNKNOWN INDICATION
     Dosage: 400 MG, QD
     Route: 048
  2. GLEEVEC [Suspect]
     Active Substance: IMATINIB MESYLATE
     Dosage: 100 MG, TID
     Route: 048

REACTIONS (11)
  - Amnesia [Unknown]
  - Muscle spasms [Unknown]
  - Pain [Unknown]
  - Ulcer [Unknown]
  - Oedema [Unknown]
  - Pruritus [Unknown]
  - Fatigue [Unknown]
  - Peripheral swelling [Unknown]
  - Rash [Unknown]
  - Dry skin [Unknown]
  - Weight decreased [Unknown]
